FAERS Safety Report 17807970 (Version 1)
Quarter: 2020Q2

REPORT INFORMATION
  Report Type: Spontaneous
  Country: FR (occurrence: FR)
  Receive Date: 20200520
  Receipt Date: 20200520
  Transmission Date: 20200714
  Serious: Yes (Hospitalization)
  Sender: FDA-Public Use
  Company Number: FR-PFIZER INC-2020198544

PATIENT
  Age: 12 Year
  Sex: Female

DRUGS (2)
  1. LYSANXIA [Suspect]
     Active Substance: PRAZEPAM
     Dosage: 40 MG
     Route: 048
     Dates: start: 20200321, end: 20200321
  2. LYRICA [Suspect]
     Active Substance: PREGABALIN
     Dosage: 100 MG
     Route: 048
     Dates: start: 20200321, end: 20200321

REACTIONS (7)
  - Accidental exposure to product by child [Recovered/Resolved]
  - Vertigo [Unknown]
  - Confusional state [Unknown]
  - Dyspnoea [Unknown]
  - Headache [Unknown]
  - Diplopia [Unknown]
  - Miosis [Unknown]

NARRATIVE: CASE EVENT DATE: 20200321
